FAERS Safety Report 8971194 (Version 1)
Quarter: 2012Q4

REPORT INFORMATION
  Report Type: 
  Country: US (occurrence: US)
  Receive Date: 20121217
  Receipt Date: 20121217
  Transmission Date: 20130627
  Serious: Yes (Other)
  Sender: FDA-Public Use
  Company Number: US-GLAXOSMITHKLINE-A1004916A

PATIENT
  Age: 67 Year
  Sex: Male

DRUGS (5)
  1. LOVAZA [Suspect]
     Indication: BLOOD TRIGLYCERIDES INCREASED
     Dosage: 2CAP Per day
     Route: 048
     Dates: start: 2008
  2. CRESTOR [Concomitant]
  3. ASPIRIN [Concomitant]
  4. MULTIVITAMIN [Concomitant]
  5. HEMORRHOIDAL MEDICATION [Concomitant]

REACTIONS (1)
  - Haemorrhoidal haemorrhage [Not Recovered/Not Resolved]
